FAERS Safety Report 9260488 (Version 1)
Quarter: 2013Q2

REPORT INFORMATION
  Report Type: Spontaneous
  Country: ES (occurrence: ES)
  Receive Date: 20130429
  Receipt Date: 20130429
  Transmission Date: 20140414
  Serious: Yes (Other)
  Sender: FDA-Public Use
  Company Number: ES-SHIRE-ALL1-2013-02607

PATIENT
  Age: 53 Year
  Sex: Female

DRUGS (4)
  1. XAGRID [Suspect]
     Indication: ESSENTIAL THROMBOCYTHAEMIA
     Dosage: 2.0 MG, 1X/DAY:QD (4 CAPSULES/DAY)
     Route: 048
     Dates: end: 201102
  2. XAGRID [Suspect]
     Dosage: UNK UNK, UNKNOWN
     Route: 048
     Dates: start: 200908
  3. XAGRID [Suspect]
     Dosage: 2.5 MG, 1X/DAY:QD (5 CAPSULES/DAY)
     Route: 048
  4. XAGRID [Suspect]
     Dosage: UNK UNK, UNKNOWN
     Route: 048
     Dates: start: 201211

REACTIONS (2)
  - Myelofibrosis [Unknown]
  - Skin ulcer [Not Recovered/Not Resolved]
